FAERS Safety Report 9642130 (Version 2)
Quarter: 2013Q4

REPORT INFORMATION
  Report Type: Report from Study
  Country: CA (occurrence: CA)
  Receive Date: 20131023
  Receipt Date: 20131023
  Transmission Date: 20140711
  Serious: Yes (Other)
  Sender: FDA-Public Use
  Company Number: CA-ROCHE-1238824

PATIENT
  Age: 36 Year
  Sex: Male

DRUGS (9)
  1. PEG-INTERFERON ALFA 2A [Suspect]
     Indication: HEPATITIS C
     Route: 058
     Dates: start: 20120822, end: 20130130
  2. RIBAVIRIN [Suspect]
     Indication: HEPATITIS C
     Route: 048
     Dates: start: 20120822, end: 20130205
  3. VX-950 [Suspect]
     Indication: HEPATITIS C
     Route: 048
     Dates: start: 20120822, end: 20121113
  4. ATRIPLA [Concomitant]
     Route: 065
     Dates: start: 200908
  5. ACICLOVIR [Concomitant]
     Route: 065
     Dates: start: 20120910, end: 20130212
  6. VALACICLOVIR [Concomitant]
     Route: 065
     Dates: start: 20130330, end: 20130412
  7. ELAVIL (AMITRIPTYLINE HYDROCHLORIDE) [Concomitant]
     Route: 065
     Dates: start: 20130330, end: 20130525
  8. HYDROVAL [Concomitant]
     Route: 065
     Dates: start: 20130423
  9. IMOVANE [Concomitant]
     Route: 065
     Dates: start: 20090915

REACTIONS (1)
  - Drug-induced liver injury [Not Recovered/Not Resolved]
